FAERS Safety Report 13646731 (Version 1)
Quarter: 2017Q2

REPORT INFORMATION
  Report Type: Spontaneous
  Country: US (occurrence: US)
  Receive Date: 20170612
  Receipt Date: 20170612
  Transmission Date: 20170830
  Serious: No
  Sender: FDA-Public Use
  Company Number: None

PATIENT
  Sex: Female

DRUGS (1)
  1. CAPECITABINE 500MG ACCORD [Suspect]
     Active Substance: CAPECITABINE
     Indication: CHOLANGIOCARCINOMA
     Dosage: 1500MG BID 2WEEKS ON AND 1 WEEK OFF PO
     Route: 048
     Dates: start: 20170415

REACTIONS (2)
  - Therapy cessation [None]
  - Blood bilirubin increased [None]
